FAERS Safety Report 7996149-7 (Version None)
Quarter: 2011Q4

REPORT INFORMATION
  Report Type: 
  Country: None (occurrence: None)
  Receive Date: 20111220
  Receipt Date: 20111214
  Transmission Date: 20120403
  Serious: Yes (Life-Threatening, Hospitalization, Other)
  Sender: FDA-Public Use
  Company Number: PHHY2011CH109814

PATIENT
  Age: 58 Year
  Sex: Female

DRUGS (5)
  1. METHYLPHENIDATE HCL [Suspect]
     Dosage: 84 MG, UNK
     Dates: start: 20110101
  2. BISOPROLOL FUMARATE [Concomitant]
     Indication: MIGRAINE
     Dosage: 2.5 MG, QD
     Route: 048
  3. CONCERTA [Suspect]
     Indication: ATTENTION DEFICIT/HYPERACTIVITY DISORDER
     Dosage: 27 MG, BID
     Route: 048
     Dates: start: 20060101, end: 20111021
  4. ABILIFY [Concomitant]
     Indication: BIPOLAR DISORDER
     Dosage: 5 MG, BID
     Route: 048
     Dates: start: 20070101, end: 20111021
  5. RITALIN [Suspect]
     Indication: ATTENTION DEFICIT/HYPERACTIVITY DISORDER
     Dosage: 10 MG, TID
     Route: 048
     Dates: start: 20060101, end: 20111021

REACTIONS (13)
  - MIGRAINE [None]
  - CARDIAC SEPTAL DEFECT [None]
  - COORDINATION ABNORMAL [None]
  - ARTERIOSCLEROSIS [None]
  - HORNER'S SYNDROME [None]
  - EYELID PTOSIS [None]
  - SPEECH DISORDER [None]
  - AORTIC OCCLUSION [None]
  - DYSARTHRIA [None]
  - BRAIN STEM INFARCTION [None]
  - FEELING ABNORMAL [None]
  - MIOSIS [None]
  - HEMIPLEGIA [None]
